APPROVED DRUG PRODUCT: DESOXIMETASONE
Active Ingredient: DESOXIMETASONE
Strength: 0.25%
Dosage Form/Route: CREAM;TOPICAL
Application: A205620 | Product #001 | TE Code: AB
Applicant: ZYDUS LIFESCIENCES LTD
Approved: Sep 28, 2018 | RLD: No | RS: No | Type: RX